FAERS Safety Report 22799352 (Version 6)
Quarter: 2024Q4

REPORT INFORMATION
  Report Type: Spontaneous
  Country: US (occurrence: US)
  Receive Date: 20230808
  Receipt Date: 20241111
  Transmission Date: 20250115
  Serious: Yes (Hospitalization)
  Sender: SANOFI AVENTIS
  Company Number: US-SA-SAC20230807001201

PATIENT
  Age: 66 Year
  Sex: Female

DRUGS (3)
  1. DUPIXENT [Suspect]
     Active Substance: DUPILUMAB
     Indication: Dermatitis atopic
     Dosage: 600 MG, 1X
     Route: 058
     Dates: start: 20230515, end: 20230515
  2. DUPIXENT [Suspect]
     Active Substance: DUPILUMAB
     Dosage: 300 MG, Q15D
     Route: 058
     Dates: start: 202305
  3. LIPITOR [Concomitant]
     Active Substance: ATORVASTATIN CALCIUM
     Dosage: UNK

REACTIONS (5)
  - Myalgia [Unknown]
  - Eye disorder [Unknown]
  - Muscle disorder [Unknown]
  - Venipuncture [Unknown]
  - Drug ineffective [Unknown]

NARRATIVE: CASE EVENT DATE: 20230101
